FAERS Safety Report 19788615 (Version 1)
Quarter: 2021Q3

REPORT INFORMATION
  Report Type: Other
  Country: CH (occurrence: CH)
  Receive Date: 20210904
  Receipt Date: 20210904
  Transmission Date: 20211014
  Serious: Yes (Life-Threatening, Hospitalization)
  Sender: FDA-Public Use
  Company Number: CH-ROCHE-2901529

PATIENT
  Age: 73 Year
  Sex: Female
  Weight: 79 kg

DRUGS (4)
  1. METOTREXATE [Suspect]
     Active Substance: METHOTREXATE SODIUM
     Indication: RHEUMATOID ARTHRITIS
     Dosage: LONGTERM.
     Route: 065
     Dates: end: 20210705
  2. XELODA [Suspect]
     Active Substance: CAPECITABINE
     Indication: BREAST CANCER METASTATIC
     Dosage: (1G/M2)
     Route: 048
     Dates: start: 20210722, end: 20210726
  3. IMUREK [Suspect]
     Active Substance: AZATHIOPRINE
     Indication: RHEUMATOID ARTHRITIS
     Route: 048
     Dates: end: 20210705
  4. LEUCOVORIN. [Suspect]
     Active Substance: LEUCOVORIN
     Indication: PROPHYLAXIS
     Route: 048
     Dates: end: 202107

REACTIONS (5)
  - Toxicity to various agents [Recovering/Resolving]
  - Pancytopenia [Recovered/Resolved]
  - Agranulocytosis [Recovered/Resolved]
  - Altered state of consciousness [Recovering/Resolving]
  - Mucosal inflammation [Recovering/Resolving]

NARRATIVE: CASE EVENT DATE: 20210726
